FAERS Safety Report 10103594 (Version 10)
Quarter: 2016Q2

REPORT INFORMATION
  Report Type: Spontaneous
  Country: US (occurrence: US)
  Receive Date: 20140424
  Receipt Date: 20160602
  Transmission Date: 20160815
  Serious: Yes (Hospitalization, Disabling)
  Sender: FDA-Public Use
  Company Number: US-ACTELION-A-US2014-97620

PATIENT
  Age: 46 Year
  Sex: Female
  Weight: 95.69 kg

DRUGS (11)
  1. REMODULIN [Suspect]
     Active Substance: TREPROSTINIL
     Indication: PULMONARY ARTERIAL HYPERTENSION
     Dosage: 80 NG/KG, PER MIN
     Route: 042
     Dates: start: 20130201
  2. ADCIRCA [Concomitant]
     Active Substance: TADALAFIL
  3. PREDNISONE. [Concomitant]
     Active Substance: PREDNISONE
     Dosage: 10 MG, QD
     Route: 048
     Dates: start: 20160305
  4. AMIODARONE [Concomitant]
     Active Substance: AMIODARONE
     Dosage: 300 MG, QD
     Dates: start: 20160502
  5. REMODULIN [Suspect]
     Active Substance: TREPROSTINIL
     Dosage: 95 NG/KG, PER MIN
     Route: 042
     Dates: start: 20141119
  6. CIALIS [Concomitant]
     Active Substance: TADALAFIL
     Dosage: 20 MG, QD
     Route: 048
     Dates: start: 20160523
  7. LASIX [Concomitant]
     Active Substance: FUROSEMIDE
     Dosage: UNK
  8. LASIX [Concomitant]
     Active Substance: FUROSEMIDE
     Dosage: 20 MG, SINGLE
  9. COUMADIN [Concomitant]
     Active Substance: WARFARIN SODIUM
     Dosage: 5 MG, QD
     Route: 048
     Dates: start: 20160428
  10. PERCOCET [Concomitant]
     Active Substance: ACETAMINOPHEN\OXYCODONE HYDROCHLORIDE
     Indication: ABDOMINAL PAIN
     Dosage: 10-325 MG, BID, PRN
     Route: 048
     Dates: start: 20160520
  11. TRACLEER [Suspect]
     Active Substance: BOSENTAN
     Indication: PULMONARY ARTERIAL HYPERTENSION
     Dosage: 125 MG, BID
     Route: 048

REACTIONS (20)
  - Obstructive uropathy [Not Recovered/Not Resolved]
  - Back pain [Not Recovered/Not Resolved]
  - Supraventricular tachycardia [Not Recovered/Not Resolved]
  - Pain in extremity [Not Recovered/Not Resolved]
  - Condition aggravated [Unknown]
  - Fibromyalgia [Not Recovered/Not Resolved]
  - Right ventricular failure [Unknown]
  - Pain [Unknown]
  - Pulmonary arterial hypertension [Recovering/Resolving]
  - Heart rate increased [Unknown]
  - Weight increased [Unknown]
  - Cardiac failure congestive [Recovered/Resolved]
  - Renal failure [Not Recovered/Not Resolved]
  - Hypotension [Not Recovered/Not Resolved]
  - Loss of consciousness [Unknown]
  - Urinary retention [Not Recovered/Not Resolved]
  - Complication associated with device [Unknown]
  - Chest pain [Recovered/Resolved]
  - Fluid overload [Recovered/Resolved]
  - Abdominal pain upper [Unknown]

NARRATIVE: CASE EVENT DATE: 20140413
